FAERS Safety Report 8338672-1 (Version None)
Quarter: 2012Q2

REPORT INFORMATION
  Report Type: 
  Country: None (occurrence: None)
  Receive Date: 20120504
  Receipt Date: 20120426
  Transmission Date: 20120825
  Serious: Yes (Hospitalization)
  Sender: FDA-Public Use
  Company Number: US-ASTRAZENECA-2012SE27785

PATIENT
  Age: 53 Year
  Sex: Female

DRUGS (6)
  1. COREG [Concomitant]
  2. PLAVIX [Concomitant]
  3. TRILIPIX [Concomitant]
  4. SYNTHROID [Concomitant]
  5. CRESTOR [Suspect]
     Route: 048
  6. XANAX [Concomitant]

REACTIONS (2)
  - CARDIAC DISORDER [None]
  - CAROTID ARTERY OCCLUSION [None]
